FAERS Safety Report 11831586 (Version 1)
Quarter: 2015Q4

REPORT INFORMATION
  Report Type: Spontaneous
  Country: US (occurrence: US)
  Receive Date: 20151214
  Receipt Date: 20151214
  Transmission Date: 20160305
  Serious: Yes (Hospitalization, Other)
  Sender: FDA-Public Use
  Company Number: US-PFIZER INC-2015419795

PATIENT
  Age: 51 Year
  Sex: Female

DRUGS (12)
  1. VIMPAT [Suspect]
     Active Substance: LACOSAMIDE
     Dosage: UNK
  2. LAMICTAL [Suspect]
     Active Substance: LAMOTRIGINE
     Dosage: 1200 MG, UNK
     Dates: end: 2011
  3. THORAZINE [Concomitant]
     Active Substance: CHLORPROMAZINE
     Dosage: UNK
  4. SEROQUEL [Suspect]
     Active Substance: QUETIAPINE FUMARATE
     Dosage: UNK
  5. ASPIRIN. [Concomitant]
     Active Substance: ASPIRIN
     Dosage: UNK
  6. NITROGLYCERINE [Concomitant]
     Active Substance: NITROGLYCERIN
     Dosage: UNK
  7. VINCAMINE [Suspect]
     Active Substance: VINCAMINE
     Indication: SEIZURE
     Dosage: UNK
  8. TRILEPTAL [Suspect]
     Active Substance: OXCARBAZEPINE
     Indication: SEIZURE
     Dosage: UNK
  9. ZONISAMIDE. [Suspect]
     Active Substance: ZONISAMIDE
     Indication: SEIZURE
     Dosage: UNK
  10. NEURONTIN [Suspect]
     Active Substance: GABAPENTIN
     Indication: SEIZURE
     Dosage: UNK
  11. DEPAKOTE [Suspect]
     Active Substance: DIVALPROEX SODIUM
     Indication: SEIZURE
     Dosage: UNK
  12. LAMICTAL [Suspect]
     Active Substance: LAMOTRIGINE
     Indication: SEIZURE
     Dosage: 800 MG, 2X/DAY
     Route: 048
     Dates: start: 2010

REACTIONS (37)
  - Fall [Unknown]
  - Pollakiuria [Unknown]
  - Loss of consciousness [Unknown]
  - Constipation [Unknown]
  - Muscular weakness [Unknown]
  - Nausea [Unknown]
  - Contusion [Unknown]
  - Tremor [Unknown]
  - Fatigue [Unknown]
  - Insomnia [Not Recovered/Not Resolved]
  - Traumatic haemorrhage [Unknown]
  - Pallor [Unknown]
  - Logorrhoea [Unknown]
  - Coordination abnormal [Unknown]
  - Depression [Unknown]
  - Alopecia [Unknown]
  - Hyperhidrosis [Unknown]
  - Balance disorder [Unknown]
  - Confusional state [Unknown]
  - Mania [Unknown]
  - Condition aggravated [Not Recovered/Not Resolved]
  - Disturbance in attention [Unknown]
  - Diplopia [Unknown]
  - Asthenia [Unknown]
  - Dizziness [Unknown]
  - Irritability [Unknown]
  - Myocardial infarction [Unknown]
  - Menopause [Unknown]
  - Increased tendency to bruise [Unknown]
  - Drug ineffective [Unknown]
  - Bone pain [Unknown]
  - Seizure [Not Recovered/Not Resolved]
  - Bipolar disorder [Unknown]
  - Cognitive disorder [Unknown]
  - Vomiting [Unknown]
  - Abdominal discomfort [Unknown]
  - Strabismus [Unknown]

NARRATIVE: CASE EVENT DATE: 2010
